FAERS Safety Report 7904056 (Version 6)
Quarter: 2013Q2

REPORT INFORMATION
  Report Type: Report from Study
  Country: JP (occurrence: JP)
  Receive Date: 20110419
  Receipt Date: 20130415
  Transmission Date: 20140414
  Serious: Yes (Hospitalization, Other)
  Sender: FDA-Public Use
  Company Number: JP-JNJFOC-20110404308

PATIENT
  Age: 73 Year
  Sex: Male

DRUGS (27)
  1. TOPINA [Suspect]
     Indication: EPILEPSY
     Route: 048
     Dates: start: 20100419, end: 20100530
  2. TOPINA [Suspect]
     Indication: EPILEPSY
     Route: 048
     Dates: start: 20100531, end: 20100620
  3. TOPINA [Suspect]
     Indication: EPILEPSY
     Route: 048
     Dates: start: 20100621, end: 20100711
  4. TOPINA [Suspect]
     Indication: EPILEPSY
     Route: 048
     Dates: start: 20100712, end: 20100801
  5. TOPINA [Suspect]
     Indication: EPILEPSY
     Route: 048
     Dates: start: 20100802, end: 20100822
  6. TOPINA [Suspect]
     Indication: EPILEPSY
     Route: 048
     Dates: start: 20100831, end: 20100906
  7. TOPINA [Suspect]
     Indication: EPILEPSY
     Route: 048
     Dates: start: 20100907, end: 20101116
  8. TOPINA [Suspect]
     Indication: EPILEPSY
     Route: 048
     Dates: start: 20101117, end: 20101121
  9. TOPINA [Suspect]
     Indication: EPILEPSY
     Route: 048
     Dates: start: 20101122, end: 20101126
  10. TOPINA [Suspect]
     Indication: EPILEPSY
     Route: 048
     Dates: start: 20101127, end: 20101201
  11. TOPINA [Suspect]
     Indication: EPILEPSY
     Route: 048
     Dates: start: 20101202, end: 20101204
  12. TOPINA [Suspect]
     Indication: EPILEPSY
     Route: 048
     Dates: start: 20101205, end: 20101206
  13. TOPINA [Suspect]
     Indication: EPILEPSY
     Route: 048
  14. TOPINA [Suspect]
     Indication: EPILEPSY
     Route: 048
     Dates: start: 20100823, end: 20100830
  15. EXCEGRAN [Suspect]
     Indication: EPILEPSY
     Route: 048
     Dates: end: 20100927
  16. SYMMETREL [Suspect]
     Indication: PARKINSONISM
     Route: 048
     Dates: start: 20100329, end: 20100826
  17. SELENICA-R [Concomitant]
     Indication: EPILEPSY
     Route: 048
  18. LAMICTAL [Concomitant]
     Indication: EPILEPSY
     Route: 048
     Dates: start: 20100420, end: 20100509
  19. LAMICTAL [Concomitant]
     Indication: EPILEPSY
     Route: 048
     Dates: end: 20100418
  20. PHENOBARBITAL SODIUM [Concomitant]
     Route: 065
     Dates: start: 20100831, end: 20100831
  21. PHENOBARBITAL SODIUM [Concomitant]
     Route: 065
     Dates: start: 20100907, end: 20100907
  22. PHENOBARBITAL SODIUM [Concomitant]
     Route: 065
     Dates: start: 20100913, end: 20100913
  23. PHENOBARBITAL [Concomitant]
     Route: 048
     Dates: start: 20100908, end: 20100910
  24. PHENOBARBITAL [Concomitant]
     Route: 048
     Dates: start: 20100911, end: 20100914
  25. PHENOBARBITAL [Concomitant]
     Route: 048
     Dates: start: 20101016, end: 20110217
  26. PHENOBARBITAL [Concomitant]
     Route: 048
     Dates: start: 20100915
  27. SODIUM VALPROATE [Concomitant]
     Route: 065
     Dates: start: 20101016, end: 20110217

REACTIONS (2)
  - Status epilepticus [Recovered/Resolved]
  - Altered state of consciousness [Not Recovered/Not Resolved]
